FAERS Safety Report 12263637 (Version 1)
Quarter: 2016Q2

REPORT INFORMATION
  Report Type: Spontaneous
  Country: US (occurrence: US)
  Receive Date: 20160413
  Receipt Date: 20160413
  Transmission Date: 20160815
  Serious: No
  Sender: FDA-Public Use
  Company Number: PHEH2016US008833

PATIENT
  Sex: Male
  Weight: 79.37 kg

DRUGS (1)
  1. VOTRIENT [Suspect]
     Active Substance: PAZOPANIB HYDROCHLORIDE
     Indication: RENAL CANCER
     Dosage: 800 MG, QD
     Route: 048
     Dates: start: 20160119

REACTIONS (4)
  - Faeces pale [Unknown]
  - Nausea [Unknown]
  - Fatigue [Unknown]
  - Hair colour changes [Unknown]
